FAERS Safety Report 9198478 (Version 1)
Quarter: 2013Q1

REPORT INFORMATION
  Report Type: Spontaneous
  Country: US (occurrence: None)
  Receive Date: 20130327
  Receipt Date: 20130327
  Transmission Date: 20140127
  Serious: Yes (Hospitalization)
  Sender: FDA-Public Use
  Company Number: None

PATIENT
  Age: 50 Year
  Sex: Female
  Weight: 75 kg

DRUGS (13)
  1. OCELLA [Suspect]
     Indication: MENORRHAGIA
     Route: 048
  2. HYDROCODONE/ACETAMINOPHEN [Concomitant]
  3. PRAVASTATIN [Concomitant]
  4. ALBUTEROL INHALER [Concomitant]
  5. IPRATROPIUM NASAL [Concomitant]
  6. METHOTREXATE [Concomitant]
  7. HYDROXYCHLOROQUINE [Concomitant]
  8. FOLIC ACID [Concomitant]
  9. CHOLECALCIFEROL [Concomitant]
  10. CALCIUM + VITAMIN D [Concomitant]
  11. MULTIVITAMIN [Concomitant]
  12. OMEPRAZOLE [Concomitant]
  13. INFLIXIMAB [Concomitant]

REACTIONS (1)
  - Deep vein thrombosis [None]
